FAERS Safety Report 19666840 (Version 1)
Quarter: 2021Q3

REPORT INFORMATION
  Report Type: Spontaneous
  Country: US (occurrence: US)
  Receive Date: 20210806
  Receipt Date: 20210806
  Transmission Date: 20211014
  Serious: Yes (Other)
  Sender: FDA-Public Use
  Company Number: None

PATIENT
  Age: 59 Year
  Sex: Male
  Weight: 93.5 kg

DRUGS (3)
  1. CARBOPLATIN. [Concomitant]
     Active Substance: CARBOPLATIN
     Dates: start: 20210504, end: 20210722
  2. ETOPOSIDE. [Suspect]
     Active Substance: ETOPOSIDE
     Indication: SMALL CELL LUNG CANCER
     Dosage: ?          OTHER FREQUENCY:X3 DAYS EVERY 21 D;?
     Route: 042
     Dates: start: 20210504, end: 20210722
  3. TECENTRIQ [Concomitant]
     Active Substance: ATEZOLIZUMAB
     Dates: start: 20210504, end: 20210720

REACTIONS (3)
  - Malignant neoplasm progression [None]
  - Product measured potency issue [None]
  - Lung neoplasm malignant [None]

NARRATIVE: CASE EVENT DATE: 20210609
